FAERS Safety Report 4588385-7 (Version None)
Quarter: 2005Q1

REPORT INFORMATION
  Report Type: 
  Country: None (occurrence: None)
  Receive Date: 20050222
  Receipt Date: 20050210
  Transmission Date: 20050727
  Serious: Yes (Congenital Anomaly)
  Sender: FDA-Public Use
  Company Number: US-JNJFOC-20050203350

PATIENT

DRUGS (2)
  1. TOPAMAX [Suspect]
  2. ZOLOFT [Concomitant]

REACTIONS (4)
  - ARNOLD-CHIARI MALFORMATION [None]
  - HYDROCEPHALUS [None]
  - MENINGOMYELOCELE [None]
  - SPINA BIFIDA [None]
